FAERS Safety Report 7818253-6 (Version None)
Quarter: 2011Q4

REPORT INFORMATION
  Report Type: 
  Country: None (occurrence: None)
  Receive Date: 20111017
  Receipt Date: 20111006
  Transmission Date: 20120403
  Serious: Yes (Other)
  Sender: FDA-Public Use
  Company Number: US-CELGENEUS-163-21880-11100922

PATIENT
  Sex: Male
  Weight: 76.726 kg

DRUGS (22)
  1. REVLIMID [Suspect]
     Indication: MULTIPLE MYELOMA
     Dosage: 25 MILLIGRAM
     Route: 048
     Dates: start: 20091101
  2. NOVOLIN 70/30 [Concomitant]
     Route: 065
  3. OXYCODONE HCL [Concomitant]
     Route: 065
  4. NASONEX [Concomitant]
     Route: 065
  5. NORVASC [Concomitant]
     Route: 065
  6. ZOCOR [Concomitant]
     Route: 065
  7. DECADRON [Concomitant]
     Route: 065
  8. PENICILLIN [Concomitant]
     Route: 065
  9. PROVENTIL [Concomitant]
     Route: 065
  10. AGGRENOX [Concomitant]
     Route: 065
  11. ATENOLOL [Concomitant]
     Route: 065
  12. ASPIRIN [Concomitant]
     Route: 065
  13. NITROGLYCERIN [Concomitant]
     Route: 065
  14. METFORMIN HYDROCHLORIDE [Concomitant]
     Route: 065
  15. NIASPAN [Concomitant]
     Route: 065
  16. XANAX [Concomitant]
     Route: 065
  17. LORCET-HD [Concomitant]
     Route: 065
  18. PROZAC [Concomitant]
     Route: 065
  19. RANEXA [Concomitant]
     Route: 065
  20. COUMADIN [Concomitant]
     Route: 065
  21. ISOSORB [Concomitant]
     Route: 065
  22. OMEPRAZOLE [Concomitant]
     Route: 065

REACTIONS (1)
  - AORTIC ANEURYSM [None]
